FAERS Safety Report 7110071-X (Version None)
Quarter: 2010Q4

REPORT INFORMATION
  Report Type: 
  Country: None (occurrence: None)
  Receive Date: 20101118
  Receipt Date: 20101103
  Transmission Date: 20110411
  Serious: Yes (Other)
  Sender: FDA-Public Use
  Company Number: AU-BAYER-201043286GPV

PATIENT
  Age: 66 Year
  Sex: Male

DRUGS (13)
  1. SORAFENIB [Suspect]
     Indication: HEPATIC NEOPLASM MALIGNANT
     Dosage: UNIT DOSE: 200 MG
     Route: 048
     Dates: start: 20050914, end: 20101013
  2. SORAFENIB [Suspect]
     Dosage: UNIT DOSE: 200 MG
     Route: 048
     Dates: start: 20101014, end: 20101014
  3. ADEFOVIR DIPIVOXIL KIT [Concomitant]
     Indication: HEPATITIS B
     Route: 048
     Dates: start: 20030601
  4. ATACAND [Concomitant]
     Indication: HYPERTENSION
     Route: 048
     Dates: start: 20020101
  5. FRUSEMIDE [Concomitant]
     Indication: OEDEMA PERIPHERAL
     Route: 048
     Dates: start: 20100703
  6. DOMPERIDONE [Concomitant]
     Indication: DECREASED APPETITE
     Route: 048
     Dates: start: 20100705
  7. LAMIVUDINE [Concomitant]
     Indication: HEPATITIS B
     Route: 048
     Dates: start: 20091020
  8. CENTRUM MULTIVITAMIN [Concomitant]
     Indication: SUPPLEMENTATION THERAPY
     Route: 048
     Dates: start: 20100705
  9. FOLIC ACID [Concomitant]
     Indication: NUTRITIONAL SUPPORT
     Route: 048
     Dates: start: 20100705
  10. INNER HEALTH PLUS [Concomitant]
     Indication: NUTRITIONAL SUPPORT
     Route: 048
     Dates: start: 20100705
  11. DARBEPOETIN ALFA [Concomitant]
     Indication: ANAEMIA
     Route: 058
     Dates: start: 20100901
  12. FERROGRADUMET [Concomitant]
     Indication: ANAEMIA
     Route: 048
     Dates: start: 20100917
  13. SODIUM BICARBONATE [Concomitant]
     Indication: ELECTROLYTE SUBSTITUTION THERAPY
     Route: 048
     Dates: start: 20100917

REACTIONS (2)
  - PURULENT DISCHARGE [None]
  - WOUND [None]
